FAERS Safety Report 8457865-6 (Version None)
Quarter: 2012Q2

REPORT INFORMATION
  Report Type: 
  Country: None (occurrence: None)
  Receive Date: 20120618
  Receipt Date: 20120618
  Transmission Date: 20120825
  Serious: Yes (Other)
  Sender: FDA-Public Use
  Company Number: None

PATIENT
  Age: 60 Year
  Sex: Male
  Weight: 79.3795 kg

DRUGS (5)
  1. VITAMIN D [Concomitant]
  2. VITAMIN-SUPPLEMENTS (MULTIVITAMINS) [Concomitant]
  3. FISH OIL [Concomitant]
  4. LISTERINE POCKETMIST COOLMINT [Suspect]
  5. LISTERINE POCKETMIST COOLMINT (ORAL CARE PRODUCTS) SPRAY [Suspect]
     Indication: BREATH ODOUR
     Dates: end: 20120510

REACTIONS (4)
  - DIZZINESS [None]
  - APNOEA [None]
  - HEART RATE INCREASED [None]
  - INCORRECT ROUTE OF DRUG ADMINISTRATION [None]
